FAERS Safety Report 7941231-3 (Version None)
Quarter: 2011Q4

REPORT INFORMATION
  Report Type: 
  Country: None (occurrence: None)
  Receive Date: 20111122
  Receipt Date: 20111110
  Transmission Date: 20120403
  Serious: Yes (Hospitalization)
  Sender: FDA-Public Use
  Company Number: DSJ-2011-24498

PATIENT
  Sex: Female

DRUGS (5)
  1. SIMVASTATIN [Concomitant]
  2. BENICAR [Suspect]
     Indication: HYPERTENSION
     Dosage: 20 MG (20 MG, 1 IN 1 D), PER ORAL
     Route: 048
     Dates: start: 20070101
  3. WARFARIN SODIUM [Concomitant]
  4. CARVEDILOL [Concomitant]
  5. TRANQUILIZER MEDICINE (NAME UNKNOWN) [Concomitant]

REACTIONS (1)
  - CEREBROVASCULAR ACCIDENT [None]
